FAERS Safety Report 10563478 (Version 2)
Quarter: 2014Q4

REPORT INFORMATION
  Report Type: Spontaneous
  Country: IT (occurrence: IT)
  Receive Date: 20141104
  Receipt Date: 20141108
  Transmission Date: 20150529
  Serious: Yes (Hospitalization, Other)
  Sender: FDA-Public Use
  Company Number: IT-ASTRAZENECA-2014SE81407

PATIENT
  Age: 25990 Day
  Sex: Male
  Weight: 80 kg

DRUGS (20)
  1. CARVEDILOL. [Suspect]
     Active Substance: CARVEDILOL
     Indication: CARDIAC FAILURE
     Dosage: 3.125 TWO TIMES A DAY
     Dates: start: 20141013
  2. TORVAST [Concomitant]
     Active Substance: ATORVASTATIN
     Dates: end: 20141018
  3. FUROSEMIDE. [Concomitant]
     Active Substance: FUROSEMIDE
     Indication: ACUTE MYOCARDIAL INFARCTION
     Route: 042
     Dates: start: 20141013, end: 20141018
  4. FUROSEMIDE. [Concomitant]
     Active Substance: FUROSEMIDE
     Indication: ACUTE MYOCARDIAL INFARCTION
     Dosage: VIALS AS REQUIRED
     Route: 042
     Dates: start: 20141019
  5. FLUIBRON [Concomitant]
     Active Substance: AMBROXOL HYDROCHLORIDE
     Route: 055
  6. ALDACTONE [Concomitant]
     Active Substance: SPIRONOLACTONE
     Indication: CARDIAC FAILURE
     Dates: start: 20141013
  7. FUROSEMIDE. [Concomitant]
     Active Substance: FUROSEMIDE
     Indication: CARDIAC FAILURE
     Dosage: VIALS AS REQUIRED
     Route: 042
     Dates: start: 20141019
  8. ASPIRIN. [Concomitant]
     Active Substance: ASPIRIN
     Indication: ANGIOPLASTY
     Dates: start: 20141006
  9. ALDACTONE [Concomitant]
     Active Substance: SPIRONOLACTONE
     Indication: CARDIAC FAILURE
  10. CORLENTOR [Concomitant]
     Active Substance: IVABRADINE HYDROCHLORIDE
     Indication: CARDIAC FAILURE
     Dates: start: 20141027
  11. CARVEDILOL. [Suspect]
     Active Substance: CARVEDILOL
     Indication: ACUTE MYOCARDIAL INFARCTION
     Dosage: 3.125 TWO TIMES A DAY
     Dates: start: 20141013
  12. ARIXTRA [Concomitant]
     Active Substance: FONDAPARINUX SODIUM
     Indication: THROMBOSIS PROPHYLAXIS
     Route: 058
  13. RAMIPRIL. [Concomitant]
     Active Substance: RAMIPRIL
     Dates: start: 20141013
  14. CORDARONE [Concomitant]
     Active Substance: AMIODARONE HYDROCHLORIDE
     Indication: VENTRICULAR TACHYCARDIA
     Dates: start: 20141016
  15. BRILIQUE [Suspect]
     Active Substance: TICAGRELOR
     Indication: PERCUTANEOUS CORONARY INTERVENTION
     Route: 048
     Dates: start: 20141006
  16. FUROSEMIDE. [Concomitant]
     Active Substance: FUROSEMIDE
     Indication: CARDIAC FAILURE
     Route: 042
     Dates: start: 20141013, end: 20141018
  17. CLENIL [Concomitant]
     Active Substance: BECLOMETHASONE DIPROPIONATE
     Route: 055
  18. TORVAST [Concomitant]
     Active Substance: ATORVASTATIN
     Dates: start: 20141019
  19. PANTOPRAZOLE [Concomitant]
     Active Substance: PANTOPRAZOLE SODIUM
     Indication: PROPHYLAXIS AGAINST GASTROINTESTINAL ULCER
  20. ROCEFIN [Concomitant]
     Active Substance: CEFTRIAXONE SODIUM
     Route: 042
     Dates: start: 20141006

REACTIONS (10)
  - Myocardial infarction [Unknown]
  - Oxygen saturation decreased [Unknown]
  - Ejection fraction decreased [Unknown]
  - Cardiac fibrillation [Unknown]
  - Bundle branch block right [Unknown]
  - Ventricular tachycardia [Unknown]
  - Adams-Stokes syndrome [Unknown]
  - Hypotension [Unknown]
  - Cheyne-Stokes respiration [Unknown]
  - Bradycardia [Unknown]

NARRATIVE: CASE EVENT DATE: 20141006
